FAERS Safety Report 18669982 (Version 1)
Quarter: 2020Q4

REPORT INFORMATION
  Report Type: Spontaneous
  Country: CA (occurrence: CA)
  Receive Date: 20201228
  Receipt Date: 20201228
  Transmission Date: 20210114
  Serious: Yes (Other)
  Sender: FDA-Public Use
  Company Number: CA-PFIZER INC-2020493983

PATIENT
  Age: 47 Year
  Sex: Female

DRUGS (3)
  1. CELEBREX [Suspect]
     Active Substance: CELECOXIB
     Indication: SPINAL COLUMN INJURY
     Dosage: UNK 3 EPISODES OF 10 DAYS
  2. CELEBREX [Suspect]
     Active Substance: CELECOXIB
     Indication: PAIN
     Dosage: UNK
     Dates: start: 202002
  3. CELEBREX [Suspect]
     Active Substance: CELECOXIB
     Dosage: UNK
     Dates: start: 2020

REACTIONS (5)
  - Anaphylactic shock [Unknown]
  - Vomiting [Unknown]
  - Dyspnoea [Unknown]
  - Agitation [Unknown]
  - Pruritus [Unknown]

NARRATIVE: CASE EVENT DATE: 202002
